FAERS Safety Report 7732770-9 (Version None)
Quarter: 2011Q3

REPORT INFORMATION
  Report Type: 
  Country: None (occurrence: None)
  Receive Date: 20110907
  Receipt Date: 20110825
  Transmission Date: 20111222
  Serious: Yes (Other)
  Sender: FDA-Public Use
  Company Number: GB-ALVOGEN-2011AL000053

PATIENT
  Age: 65 Year
  Sex: Female

DRUGS (7)
  1. NITROFURANTOIN [Suspect]
     Indication: URINARY TRACT INFECTION
  2. DOTHIEPIN HYDROCHLORIDE [Concomitant]
  3. ALBUTEROL [Concomitant]
  4. MEBEVERINE [Concomitant]
  5. LANSOPRAZOLE [Concomitant]
  6. ACETAMINOPHEN [Concomitant]
  7. FLUCONAZOLE [Concomitant]
     Indication: CANDIDIASIS

REACTIONS (2)
  - AUTOIMMUNE HEPATITIS [None]
  - OEDEMA PERIPHERAL [None]
